FAERS Safety Report 8015003 (Version 3)
Quarter: 2014Q2

REPORT INFORMATION
  Report Type: Report from Study
  Country: US (occurrence: US)
  Receive Date: 20110629
  Receipt Date: 20140423
  Transmission Date: 20141212
  Serious: Yes (Death, Hospitalization)
  Sender: FDA-Public Use
  Company Number: US-ALEXION-A201100736

PATIENT
  Age: 84 Year
  Sex: Female

DRUGS (8)
  1. SOLIRIS [Suspect]
     Indication: PAROXYSMAL NOCTURNAL HAEMOGLOBINURIA
     Dosage: UNK
     Route: 042
     Dates: end: 20110322
  2. SOLIRIS [Suspect]
     Dosage: UNK, SINGLE
     Route: 042
     Dates: start: 201106, end: 201106
  3. CALTRATE D PLUS MINERALS [Concomitant]
  4. FOLIC ACID [Concomitant]
  5. OCUVITE [Concomitant]
  6. PRILOSEC [Concomitant]
  7. SYNTHROID [Concomitant]
  8. VITAMIN D [Concomitant]

REACTIONS (14)
  - Myelodysplastic syndrome [Fatal]
  - Condition aggravated [Fatal]
  - Paroxysmal nocturnal haemoglobinuria [Fatal]
  - Condition aggravated [Fatal]
  - Pneumonitis [Fatal]
  - Transfusion reaction [Unknown]
  - Pneumonia [Recovering/Resolving]
  - Sepsis [Unknown]
  - Pancytopenia [Unknown]
  - Lung disorder [Unknown]
  - Gait disturbance [Unknown]
  - Haemorrhage [Unknown]
  - Cough [Unknown]
  - Contusion [Unknown]
